FAERS Safety Report 8059668-3 (Version None)
Quarter: 2012Q1

REPORT INFORMATION
  Report Type: 
  Country: None (occurrence: None)
  Receive Date: 20120119
  Receipt Date: 20120119
  Transmission Date: 20120608
  Serious: Yes (Hospitalization)
  Sender: FDA-Public Use
  Company Number: None

PATIENT
  Age: 34 Year
  Sex: Female
  Weight: 90 kg

DRUGS (14)
  1. LISINOPRIL [Concomitant]
  2. COUMADIN [Suspect]
     Indication: CORONARY ARTERY DISEASE
     Dosage: 10MG DAILY PO CHRONIC
     Route: 048
  3. PLAQUENIL [Concomitant]
  4. VIT C [Concomitant]
  5. KEPPRA [Concomitant]
  6. ALBUTEROL [Concomitant]
  7. LYRICA [Concomitant]
  8. PROMATHAZENE [Concomitant]
  9. SIMVASTATIN [Concomitant]
  10. OMEPRAZOLE [Concomitant]
  11. HYDROCHLOROTHIAZIDE [Concomitant]
  12. BACTRIM [Suspect]
     Indication: RASH
     Dosage: TABLET ID PO RECENT
     Route: 048
  13. DIAZEPAM [Concomitant]
  14. AMBIEN [Concomitant]

REACTIONS (4)
  - SYSTEMIC INFLAMMATORY RESPONSE SYNDROME [None]
  - CHEST PAIN [None]
  - COAGULOPATHY [None]
  - INTERNATIONAL NORMALISED RATIO INCREASED [None]
